FAERS Safety Report 6426699-6 (Version None)
Quarter: 2009Q4

REPORT INFORMATION
  Report Type: 
  Country: None (occurrence: None)
  Receive Date: 20091104
  Receipt Date: 20091015
  Transmission Date: 20100525
  Serious: No
  Sender: FDA-Public Use
  Company Number: CA-ELI_LILLY_AND_COMPANY-CA200910003989

PATIENT
  Sex: Male

DRUGS (2)
  1. OLANZAPINE [Suspect]
     Dosage: 10 MG, UNKNOWN
     Dates: start: 20090801
  2. CLOZARIL [Concomitant]
     Indication: SCHIZOPHRENIA
     Dosage: 900 MG, DAILY (1/D)
     Route: 048
     Dates: start: 20051001

REACTIONS (2)
  - MALNUTRITION [None]
  - NEUTROPENIA [None]
